FAERS Safety Report 8554344-2 (Version None)
Quarter: 2012Q3

REPORT INFORMATION
  Report Type: 
  Country: None (occurrence: None)
  Receive Date: 20120731
  Receipt Date: 20120723
  Transmission Date: 20120928
  Serious: Yes (Hospitalization)
  Sender: FDA-Public Use
  Company Number: US-009507513-1207USA010451

PATIENT

DRUGS (11)
  1. ZOCOR [Suspect]
  2. PANITUMUMAB [Suspect]
     Dosage: 1 DF, QOW
  3. PANITUMUMAB [Suspect]
     Dosage: UNK
  4. CORTICOSTEROIDS (UNSPECIFIED) [Concomitant]
  5. IRINOTECAN HYDROCHLORIDE [Suspect]
     Dosage: 100 MG, QOW
  6. FLUOROURACIL [Suspect]
     Dosage: 1 DF, QOW
  7. LEVOLEUCOVORIN CALCIUM [Suspect]
     Dosage: 200 MG, QOW
  8. KYTRIL [Suspect]
  9. DECADRON PHOSPHATE [Suspect]
     Route: 048
  10. ATORVASTATIN CALCIUM [Suspect]
  11. COUGH, COLD, AND FLU THERAPIES (UNSPECIFIED) [Concomitant]

REACTIONS (4)
  - DERMATITIS ACNEIFORM [None]
  - DECREASED APPETITE [None]
  - NEUROPATHY PERIPHERAL [None]
  - DEEP VEIN THROMBOSIS [None]
